FAERS Safety Report 6142833-X (Version None)
Quarter: 2009Q2

REPORT INFORMATION
  Report Type: 
  Country: None (occurrence: None)
  Receive Date: 20090403
  Receipt Date: 20090324
  Transmission Date: 20091009
  Serious: Yes (Hospitalization, Other)
  Sender: FDA-Public Use
  Company Number: CA-ABBOTT-07P-028-0356484-00

PATIENT
  Sex: Female
  Weight: 63.56 kg

DRUGS (7)
  1. HUMIRA [Suspect]
     Indication: RHEUMATOID ARTHRITIS
     Route: 058
     Dates: start: 20070112, end: 20090201
  2. HUMIRA [Suspect]
     Route: 058
     Dates: start: 20090201
  3. CARBOCAL [Concomitant]
     Indication: DRUG USE FOR UNKNOWN INDICATION
     Route: 048
  4. PREDNISONE [Concomitant]
     Indication: DRUG USE FOR UNKNOWN INDICATION
     Route: 048
  5. HYDROMORPHONE HCL [Concomitant]
     Indication: DRUG USE FOR UNKNOWN INDICATION
     Route: 048
  6. MS CONTIN [Concomitant]
     Indication: DRUG USE FOR UNKNOWN INDICATION
     Route: 048
  7. LACTULOSE [Concomitant]
     Indication: DRUG USE FOR UNKNOWN INDICATION
     Route: 048

REACTIONS (12)
  - BACK PAIN [None]
  - BONE PAIN [None]
  - CHEST PAIN [None]
  - CONDITION AGGRAVATED [None]
  - FEELING HOT [None]
  - HEADACHE [None]
  - INSOMNIA [None]
  - MUSCULOSKELETAL STIFFNESS [None]
  - OEDEMA PERIPHERAL [None]
  - ORAL HERPES [None]
  - PAIN [None]
  - PYREXIA [None]
